FAERS Safety Report 4403606-9 (Version None)
Quarter: 2004Q3

REPORT INFORMATION
  Report Type: 
  Country: None (occurrence: None)
  Receive Date: 20040721
  Receipt Date: 20040615
  Transmission Date: 20050211
  Serious: Yes (Other)
  Sender: FDA-Public Use
  Company Number: PHEH2004US06633

PATIENT
  Age: 46 Year
  Sex: Female

DRUGS (1)
  1. LAMISIL [Suspect]
     Indication: NAIL TINEA
     Dosage: 250 MG, QD
     Route: 048
     Dates: start: 20040305, end: 20040605

REACTIONS (5)
  - BLOOD GLUCOSE DECREASED [None]
  - CRYING [None]
  - DEPRESSED MOOD [None]
  - DEPRESSION [None]
  - FEELING ABNORMAL [None]
